FAERS Safety Report 7656335-2 (Version None)
Quarter: 2011Q3

REPORT INFORMATION
  Report Type: 
  Country: None (occurrence: None)
  Receive Date: 20110804
  Receipt Date: 20110725
  Transmission Date: 20111222
  Serious: Yes (Other)
  Sender: FDA-Public Use
  Company Number: US-ROCHE-772649

PATIENT
  Sex: Male
  Weight: 74.8 kg

DRUGS (2)
  1. CLARAVIS [Suspect]
     Indication: ACNE
     Route: 065
     Dates: start: 20070601, end: 20071201
  2. ACCUTANE [Suspect]
     Indication: ACNE
     Route: 065
     Dates: start: 20070501, end: 20070601

REACTIONS (7)
  - ANAL FISTULA [None]
  - CROHN'S DISEASE [None]
  - DEPRESSION [None]
  - NECK PAIN [None]
  - INFLAMMATORY BOWEL DISEASE [None]
  - EMOTIONAL DISTRESS [None]
  - ARTHRALGIA [None]
